FAERS Safety Report 7402366-7 (Version None)
Quarter: 2011Q1

REPORT INFORMATION
  Report Type: 
  Country: None (occurrence: None)
  Receive Date: 20110330
  Receipt Date: 20110321
  Transmission Date: 20110831
  Serious: Yes (Other)
  Sender: FDA-Public Use
  Company Number: JHP201100066

PATIENT
  Sex: Female

DRUGS (2)
  1. ANTIRETROVIAL THERAPY [Concomitant]
  2. EPINEPHRINE [Suspect]
     Dosage: LOCALLY APPLIED

REACTIONS (3)
  - ACUTE CORONARY SYNDROME [None]
  - PROCEDURAL COMPLICATION [None]
  - HYPERTENSION [None]
